FAERS Safety Report 23313734 (Version 1)
Quarter: 2023Q4

REPORT INFORMATION
  Report Type: Spontaneous
  Country: IN (occurrence: IN)
  Receive Date: 20231219
  Receipt Date: 20231219
  Transmission Date: 20240110
  Serious: Yes (Death)
  Sender: FDA-Public Use
  Company Number: IN-PFIZER INC-PV202300178337

PATIENT
  Age: 38 Year
  Sex: Male

DRUGS (3)
  1. INOTUZUMAB OZOGAMICIN [Suspect]
     Active Substance: INOTUZUMAB OZOGAMICIN
     Indication: B precursor type acute leukaemia
     Dosage: 1 MG 1ST CYCLE 1ST DOSE
     Route: 042
     Dates: start: 20230916
  2. INOTUZUMAB OZOGAMICIN [Suspect]
     Active Substance: INOTUZUMAB OZOGAMICIN
     Dosage: 1 MG 1ST CYCLE 2ND DOSE
     Route: 042
     Dates: start: 20230923
  3. INOTUZUMAB OZOGAMICIN [Suspect]
     Active Substance: INOTUZUMAB OZOGAMICIN
     Dosage: 1 MG 1ST CYCLE 3RD DOSE
     Route: 042
     Dates: start: 20230930

REACTIONS (2)
  - Death [Fatal]
  - Platelet count decreased [Fatal]
